FAERS Safety Report 8168288 (Version 2)
Quarter: 2015Q1

REPORT INFORMATION
  Report Type: Spontaneous
  Country: US (occurrence: None)
  Receive Date: 20110926
  Receipt Date: 20150226
  Transmission Date: 20150721
  Serious: Yes (Other)
  Sender: FDA-Public Use
  Company Number: TPA2011A05710

PATIENT
  Age: 70 Year
  Sex: Male

DRUGS (5)
  1. AVANDIA (ROSIGLITAZONE MALEATE) [Concomitant]
  2. ACTOPLUS MET [Suspect]
     Active Substance: METFORMIN HYDROCHLORIDE\PIOGLITAZONE HYDROCHLORIDE
     Indication: TYPE 2 DIABETES MELLITUS
     Dates: start: 20090123, end: 20110819
  3. JANUVIA [Concomitant]
     Active Substance: SITAGLIPTIN PHOSPHATE
  4. METFORMIN [Concomitant]
     Active Substance: METFORMIN HYDROCHLORIDE
  5. LEVEMIR [Concomitant]
     Active Substance: INSULIN DETEMIR

REACTIONS (1)
  - Bladder cancer [None]

NARRATIVE: CASE EVENT DATE: 201104
